FAERS Safety Report 7909143-9 (Version None)
Quarter: 2011Q4

REPORT INFORMATION
  Report Type: 
  Country: None (occurrence: None)
  Receive Date: 20111111
  Receipt Date: 20101206
  Transmission Date: 20120403
  Serious: Yes (Other)
  Sender: FDA-Public Use
  Company Number: US-GLAXOSMITHKLINE-A0898002A

PATIENT

DRUGS (2)
  1. UNKNOWN [Concomitant]
  2. CARVEDILOL [Suspect]
     Indication: HYPERTENSION
     Dosage: 25MG TWICE PER DAY
     Route: 048

REACTIONS (1)
  - SYNCOPE [None]
